FAERS Safety Report 12727162 (Version 2)
Quarter: 2017Q4

REPORT INFORMATION
  Report Type: Spontaneous
  Country: US (occurrence: US)
  Receive Date: 20160909
  Receipt Date: 20171111
  Transmission Date: 20180320
  Serious: Yes (Other)
  Sender: FDA-Public Use
  Company Number: US-TEVA-680695USA

PATIENT
  Sex: Female

DRUGS (6)
  1. PERCOCET [Concomitant]
     Active Substance: ACETAMINOPHEN\OXYCODONE HYDROCHLORIDE
  2. COPAXONE [Suspect]
     Active Substance: GLATIRAMER ACETATE
     Dates: start: 201607, end: 201703
  3. BACLOFEN. [Concomitant]
     Active Substance: BACLOFEN
  4. BCP [Concomitant]
  5. BETASERON [Concomitant]
     Active Substance: INTERFERON BETA-1B
  6. MODAFINIL. [Concomitant]
     Active Substance: MODAFINIL

REACTIONS (3)
  - Multiple sclerosis [Not Recovered/Not Resolved]
  - Product packaging issue [Unknown]
  - Injection site pain [Unknown]
